FAERS Safety Report 4484322-4 (Version None)
Quarter: 2004Q4

REPORT INFORMATION
  Report Type: 
  Country: None (occurrence: None)
  Receive Date: 20041021
  Receipt Date: 20041006
  Transmission Date: 20050328
  Serious: Yes (Death)
  Sender: FDA-Public Use
  Company Number: 2004AL000830

PATIENT
  Age: 67 Year
  Sex: 0

DRUGS (2)
  1. CHLORPROMAZINE HYDROCHLORIDE [Suspect]
     Dosage: PO
     Route: 048
  2. OLANZAPINE [Suspect]
     Dosage: PO
     Route: 048

REACTIONS (2)
  - ADVERSE DRUG REACTION [None]
  - MULTIPLE DRUG OVERDOSE [None]
